FAERS Safety Report 5221033-1 (Version None)
Quarter: 2007Q1

REPORT INFORMATION
  Report Type: 
  Country: None (occurrence: None)
  Receive Date: 20070126
  Receipt Date: 20070115
  Transmission Date: 20070707
  Serious: Yes (Death, Life-Threatening)
  Sender: FDA-Public Use
  Company Number: JP-MERCK-0402USA00881

PATIENT
  Age: 0 Day
  Sex: Female
  Weight: 1 kg

DRUGS (2)
  1. INDOCIN [Suspect]
     Indication: UTERINE HYPERTONUS
     Route: 064
  2. DICLOFENAC SODIUM [Suspect]
     Indication: PYREXIA
     Route: 064

REACTIONS (6)
  - APGAR SCORE LOW [None]
  - DRUG EXPOSURE DURING PREGNANCY [None]
  - ILEAL PERFORATION [None]
  - NEONATAL RESPIRATORY DISTRESS SYNDROME [None]
  - PATENT DUCTUS ARTERIOSUS [None]
  - PREMATURE BABY [None]
